FAERS Safety Report 24417517 (Version 2)
Quarter: 2025Q3

REPORT INFORMATION
  Report Type: Spontaneous
  Country: EU (occurrence: EU)
  Receive Date: 20241009
  Receipt Date: 20250809
  Transmission Date: 20251021
  Serious: Yes (Hospitalization, Other)
  Sender: ALEXION PHARMACEUTICALS
  Company Number: 2024012047-000

PATIENT
  Age: 26 Year
  Sex: Male
  Weight: 62 kg

DRUGS (4)
  1. QUETIAPINE FUMARATE [Suspect]
     Active Substance: QUETIAPINE FUMARATE
     Indication: Borderline personality disorder
     Dosage: 30 PCS OF 50 MG
     Dates: start: 20240414, end: 20240414
  2. QUETIAPINE FUMARATE [Suspect]
     Active Substance: QUETIAPINE FUMARATE
     Dosage: QUETIAPINE 50 MG/D
  3. VALPROMIDE [Suspect]
     Active Substance: VALPROMIDE
     Indication: Borderline personality disorder
     Dosage: 21000 MILLIGRAM, QD
     Dates: start: 20240414, end: 20240414
  4. VALPROMIDE [Suspect]
     Active Substance: VALPROMIDE
     Indication: Embolism venous
     Dosage: DEPAMIDE 300 MG MORNING AND EVENING
     Dates: start: 20240414, end: 20240414

REACTIONS (6)
  - Poisoning deliberate [Recovered/Resolved]
  - Coma [Recovered/Resolved]
  - Hyperammonaemia [Recovered/Resolved]
  - Lactic acidosis [Recovered/Resolved]
  - Shock [Unknown]
  - Transcription medication error [Unknown]

NARRATIVE: CASE EVENT DATE: 20240414
